FAERS Safety Report 10511811 (Version 1)
Quarter: 2014Q3

REPORT INFORMATION
  Report Type: Spontaneous
  Country: US (occurrence: None)
  Receive Date: 20140926
  Receipt Date: 20140926
  Transmission Date: 20150326
  Serious: No
  Sender: FDA-Public Use
  Company Number: 1000068041

PATIENT
  Age: 90 Year
  Sex: Female

DRUGS (5)
  1. NITROFURANTOIN (NITROFURANTOIN) (NITROFURANTOIN) [Concomitant]
  2. BLOOD PRESSURE MEDICATION [Concomitant]
     Active Substance: UNSPECIFIED INGREDIENT
  3. SUPPOSITORY NOS (SUPPOSITORY NOS) [Suspect]
     Active Substance: UNSPECIFIED INGREDIENT
     Indication: CONSTIPATION
     Dates: start: 20140608, end: 20140608
  4. VITAMINS NOS (VITAMINS NOS) (VITAMINS NOS) [Concomitant]
  5. LINZESS [Suspect]
     Active Substance: LINACLOTIDE
     Indication: IRRITABLE BOWEL SYNDROME
     Dosage: (145 MCG, 1 IN 1)
     Dates: start: 20140528, end: 20140609

REACTIONS (2)
  - Gastrointestinal motility disorder [None]
  - Diarrhoea [None]

NARRATIVE: CASE EVENT DATE: 20140608
